FAERS Safety Report 6566124-8 (Version None)
Quarter: 2010Q1

REPORT INFORMATION
  Report Type: 
  Country: None (occurrence: None)
  Receive Date: 20100202
  Receipt Date: 20100123
  Transmission Date: 20100710
  Serious: Yes (Hospitalization)
  Sender: FDA-Public Use
  Company Number: US-JNJFOC-20100111136

PATIENT
  Sex: Male

DRUGS (2)
  1. EXTRA STRENGTH TYLENOL [Suspect]
  2. EXTRA STRENGTH TYLENOL [Suspect]
     Indication: SLEEP DISORDER THERAPY

REACTIONS (4)
  - DIARRHOEA [None]
  - HAEMORRHAGE [None]
  - PRODUCT QUALITY ISSUE [None]
  - VIRAL INFECTION [None]
